FAERS Safety Report 7275268-7 (Version None)
Quarter: 2011Q1

REPORT INFORMATION
  Report Type: 
  Country: None (occurrence: None)
  Receive Date: 20110204
  Receipt Date: 20110120
  Transmission Date: 20110831
  Serious: Yes (Death)
  Sender: FDA-Public Use
  Company Number: SE-ROCHE-754558

PATIENT

DRUGS (3)
  1. AVASTIN [Suspect]
     Route: 065
  2. TAXOTERE [Concomitant]
  3. TARCEVA [Concomitant]

REACTIONS (1)
  - DISEASE PROGRESSION [None]
